FAERS Safety Report 12918182 (Version 1)
Quarter: 2016Q4

REPORT INFORMATION
  Report Type: Report from Study
  Country: US (occurrence: US)
  Receive Date: 20161107
  Receipt Date: 20161107
  Transmission Date: 20170207
  Serious: Yes (Other)
  Sender: FDA-Public Use
  Company Number: US-AMGEN-USASL2016151696

PATIENT
  Age: 55 Year
  Sex: Female

DRUGS (1)
  1. REPATHA [Suspect]
     Active Substance: EVOLOCUMAB
     Indication: BLOOD CHOLESTEROL INCREASED
     Dosage: 140 MG, Q2WK
     Route: 065

REACTIONS (18)
  - Oropharyngeal pain [Unknown]
  - Pain in extremity [Unknown]
  - Chest discomfort [Unknown]
  - Discomfort [Unknown]
  - Hypoaesthesia [Unknown]
  - Malaise [Unknown]
  - Influenza like illness [Unknown]
  - Muscle spasms [Unknown]
  - Migraine with aura [Unknown]
  - Dizziness [Unknown]
  - Paralysis [Unknown]
  - Tinnitus [Unknown]
  - Balance disorder [Unknown]
  - Head discomfort [Unknown]
  - Neck pain [Unknown]
  - Pain [Unknown]
  - Pollakiuria [Unknown]
  - Paraesthesia [Unknown]
